FAERS Safety Report 5071901-9 (Version None)
Quarter: 2006Q3

REPORT INFORMATION
  Report Type: 
  Country: None (occurrence: None)
  Receive Date: 20060804
  Receipt Date: 20060726
  Transmission Date: 20061208
  Serious: Yes (Hospitalization, Disabling)
  Sender: FDA-Public Use
  Company Number: PH-MERCK-0607PHL00007

PATIENT
  Age: 17 Year
  Sex: Female

DRUGS (1)
  1. SINGULAIR [Suspect]
     Indication: ASTHMA
     Route: 048
     Dates: start: 20060701, end: 20060701

REACTIONS (3)
  - HEADACHE [None]
  - INSOMNIA [None]
  - MALAISE [None]
